FAERS Safety Report 9904122 (Version 1)
Quarter: 2014Q1

REPORT INFORMATION
  Report Type: Spontaneous
  Country: US (occurrence: US)
  Receive Date: 20140218
  Receipt Date: 20140218
  Transmission Date: 20141002
  Serious: No
  Sender: FDA-Public Use
  Company Number: US-BIOGENIDEC-2014BI013268

PATIENT
  Age: 49 Year
  Sex: Female

DRUGS (5)
  1. TECFIDERA [Suspect]
     Indication: MULTIPLE SCLEROSIS
     Route: 048
     Dates: start: 201306
  2. PERCOCET [Concomitant]
  3. SOMA [Concomitant]
  4. WARFARIN SODIUM [Concomitant]
  5. BENADRYL [Concomitant]

REACTIONS (1)
  - Chromaturia [Unknown]
